FAERS Safety Report 7546202-7 (Version None)
Quarter: 2011Q2

REPORT INFORMATION
  Report Type: 
  Country: None (occurrence: None)
  Receive Date: 20110614
  Receipt Date: 20020518
  Transmission Date: 20111010
  Serious: Yes (Death, Hospitalization)
  Sender: FDA-Public Use
  Company Number: PHEH2002US04293

PATIENT
  Sex: Female

DRUGS (1)
  1. EXELON [Suspect]
     Indication: DEMENTIA ALZHEIMER'S TYPE
     Dosage: 6 MG, UNK
     Route: 048
     Dates: start: 20001106, end: 20011223

REACTIONS (5)
  - SYNCOPE [None]
  - BRADYCARDIA [None]
  - DEMENTIA ALZHEIMER'S TYPE [None]
  - MUSCLE RIGIDITY [None]
  - RENAL FAILURE CHRONIC [None]
